FAERS Safety Report 14203092 (Version 1)
Quarter: 2017Q4

REPORT INFORMATION
  Report Type: Spontaneous
  Country: GB (occurrence: GB)
  Receive Date: 20171120
  Receipt Date: 20171120
  Transmission Date: 20180321
  Serious: Yes (Hospitalization)
  Sender: FDA-Public Use
  Company Number: GB-CONCORDIA PHARMACEUTICALS INC.-GSH201601-000330

PATIENT
  Age: 74 Year
  Sex: Male

DRUGS (13)
  1. CLARITHROMYCIN. [Suspect]
     Active Substance: CLARITHROMYCIN
     Indication: LOWER RESPIRATORY TRACT INFECTION
     Route: 048
     Dates: start: 20151231, end: 20160103
  2. CREON [Concomitant]
     Active Substance: PANCRELIPASE AMYLASE\PANCRELIPASE LIPASE\PANCRELIPASE PROTEASE
  3. LUMIGAN [Concomitant]
     Active Substance: BIMATOPROST
  4. DIGOXIN. [Suspect]
     Active Substance: DIGOXIN
  5. GLICLAZIDE [Concomitant]
     Active Substance: GLICLAZIDE
  6. PREDNISOLONE. [Concomitant]
     Active Substance: PREDNISOLONE
  7. CLOPIDOGREL [Concomitant]
     Active Substance: CLOPIDOGREL BISULFATE
  8. FOLIC ACID. [Concomitant]
     Active Substance: FOLIC ACID
  9. POSACONAZOLE [Suspect]
     Active Substance: POSACONAZOLE
  10. DORZOLAMIDE [Concomitant]
     Active Substance: DORZOLAMIDE
  11. METFORMIN [Concomitant]
     Active Substance: METFORMIN HYDROCHLORIDE
  12. SALBUTAMOL [Concomitant]
     Active Substance: ALBUTEROL
  13. LOSARTAN. [Concomitant]
     Active Substance: LOSARTAN

REACTIONS (4)
  - Drug interaction [Unknown]
  - Dizziness [Unknown]
  - Cardioactive drug level increased [Unknown]
  - Syncope [Unknown]

NARRATIVE: CASE EVENT DATE: 20160103
